FAERS Safety Report 20001407 (Version 1)
Quarter: 2021Q4

REPORT INFORMATION
  Report Type: Spontaneous
  Country: FR (occurrence: FR)
  Receive Date: 20211027
  Receipt Date: 20211027
  Transmission Date: 20220304
  Serious: Yes (Life-Threatening)
  Sender: FDA-Public Use
  Company Number: FR-ABBVIE-21K-056-4136281-00

PATIENT
  Age: 3 Year
  Sex: Female
  Weight: 14 kg

DRUGS (1)
  1. VALPROATE SODIUM [Suspect]
     Active Substance: VALPROATE SODIUM
     Indication: Hypoxic-ischaemic encephalopathy
     Route: 050
     Dates: start: 201611, end: 20190608

REACTIONS (4)
  - Lactic acidosis [Recovering/Resolving]
  - Thrombocytopenia [Recovering/Resolving]
  - Prothrombin time ratio decreased [Recovering/Resolving]
  - Pancreatitis [Recovering/Resolving]

NARRATIVE: CASE EVENT DATE: 20190607
